FAERS Safety Report 8961339 (Version 1)
Quarter: 2012Q4

REPORT INFORMATION
  Report Type: 
  Country: US (occurrence: US)
  Receive Date: 20121213
  Receipt Date: 20121213
  Transmission Date: 20130627
  Serious: No
  Sender: FDA-Public Use
  Company Number: US-ALLERGAN-1213454US

PATIENT
  Sex: Female

DRUGS (1)
  1. ACZONE [Suspect]
     Indication: ACNE
     Dosage: UNK, qd
     Route: 061
     Dates: start: 20120923, end: 20120923

REACTIONS (6)
  - Eye swelling [Unknown]
  - Drug ineffective [Unknown]
  - Application site swelling [Unknown]
  - Application site erythema [Unknown]
  - Erythema [Unknown]
  - Skin swelling [Unknown]
